FAERS Safety Report 9965135 (Version 1)
Quarter: 2014Q1

REPORT INFORMATION
  Report Type: Report from Study
  Country: US (occurrence: US)
  Receive Date: 20140305
  Receipt Date: 20140305
  Transmission Date: 20141002
  Serious: No
  Sender: FDA-Public Use
  Company Number: US-ABBVIE-13P-163-1128883-00

PATIENT
  Age: 38 Year
  Sex: Female

DRUGS (6)
  1. HUMIRA [Suspect]
     Indication: CROHN^S DISEASE
     Dates: start: 20130507
  2. IMURAN [Concomitant]
     Indication: CROHN^S DISEASE
  3. BACTRIM [Concomitant]
     Indication: DRAIN PLACEMENT
  4. CLARITIN [Concomitant]
     Indication: HYPERSENSITIVITY
     Dosage: DAILY
  5. VITAMIN B [Concomitant]
     Indication: PRODUCT USED FOR UNKNOWN INDICATION
     Dosage: DAILY
  6. CALCIUM COMPLETE [Concomitant]
     Indication: PRODUCT USED FOR UNKNOWN INDICATION
     Dosage: DAILY

REACTIONS (2)
  - Headache [Recovered/Resolved]
  - Headache [Recovered/Resolved]
